FAERS Safety Report 4634675-9 (Version None)
Quarter: 2005Q2

REPORT INFORMATION
  Report Type: 
  Country: None (occurrence: None)
  Receive Date: 20050413
  Receipt Date: 20050413
  Transmission Date: 20051028
  Serious: Yes (Other)
  Sender: FDA-Public Use
  Company Number: None

PATIENT
  Sex: Female
  Weight: 66.6788 kg

DRUGS (4)
  1. KETEK [Suspect]
     Indication: BRONCHITIS
     Dosage: 400 MG DAIILY
     Dates: start: 20050203, end: 20050205
  2. KETEK [Suspect]
     Indication: SINUSITIS
     Dosage: 400 MG DAIILY
     Dates: start: 20050203, end: 20050205
  3. CELLCEPT [Concomitant]
  4. MESTINON [Concomitant]

REACTIONS (1)
  - DIPLOPIA [None]
